FAERS Safety Report 8828935 (Version 2)
Quarter: 2012Q4

REPORT INFORMATION
  Report Type: 
  Country: US (occurrence: US)
  Receive Date: 20121008
  Receipt Date: 20121019
  Transmission Date: 20130627
  Serious: Yes (Death, Other)
  Sender: FDA-Public Use
  Company Number: US-ROCHE-1130692

PATIENT
  Age: 96 Year
  Sex: Male

DRUGS (4)
  1. RITUXAN [Suspect]
     Indication: IDIOPATHIC THROMBOCYTOPENIC PURPURA
     Route: 042
     Dates: start: 20001116, end: 20001215
  2. RITUXAN [Suspect]
     Indication: OFF LABEL USE
  3. PREDNISONE [Concomitant]
     Route: 065
  4. DANAZOL [Concomitant]

REACTIONS (3)
  - Death [Fatal]
  - Platelet count decreased [Unknown]
  - Oedema peripheral [Recovering/Resolving]
